FAERS Safety Report 25844462 (Version 1)
Quarter: 2025Q3

REPORT INFORMATION
  Report Type: Spontaneous
  Country: US (occurrence: US)
  Receive Date: 20250925
  Receipt Date: 20250925
  Transmission Date: 20251021
  Serious: Yes (Other)
  Sender: TEVA
  Company Number: US-TEVA-VS-3375186

PATIENT
  Age: 32 Year
  Sex: Female

DRUGS (5)
  1. FIORICET [Suspect]
     Active Substance: ACETAMINOPHEN\BUTALBITAL\CAFFEINE
     Indication: Migraine
     Route: 048
     Dates: start: 20241103
  2. FERROUS SULFATE [Concomitant]
     Active Substance: FERROUS SULFATE
     Indication: Mineral supplementation
     Dates: start: 20241114
  3. VITAMINS [Concomitant]
     Active Substance: VITAMINS
     Indication: Vitamin supplementation
  4. BOTOX [Suspect]
     Active Substance: ONABOTULINUMTOXINA
     Indication: Migraine prophylaxis
     Dosage: DOSE: 155 UNIT, FREQUENCY: ONCE EVERY 12 WEEKS, AS NECESSARY
     Route: 065
  5. TYLENOL [Suspect]
     Active Substance: ACETAMINOPHEN
     Indication: Migraine
     Route: 048
     Dates: start: 20240901

REACTIONS (5)
  - Abnormal cord insertion [Recovered/Resolved]
  - Maternal exposure during pregnancy [Unknown]
  - Gestational hypertension [Recovered/Resolved]
  - Live birth [Unknown]
  - Premature delivery [Unknown]

NARRATIVE: CASE EVENT DATE: 20241103
